FAERS Safety Report 5170087-X (Version None)
Quarter: 2006Q4

REPORT INFORMATION
  Report Type: 
  Country: None (occurrence: None)
  Receive Date: 20061212
  Receipt Date: 20061205
  Transmission Date: 20070319
  Serious: Yes (Other)
  Sender: FDA-Public Use
  Company Number: US-BRISTOL-MYERS SQUIBB COMPANY-13602529

PATIENT
  Sex: Male

DRUGS (4)
  1. VIDEX [Suspect]
     Indication: HIV INFECTION
     Dates: start: 20061101
  2. REYATAZ [Suspect]
     Indication: HIV INFECTION
     Dates: start: 20061101
  3. EPIVIR [Concomitant]
     Dates: start: 20061101
  4. ADVIL [Concomitant]

REACTIONS (1)
  - PAPILLOEDEMA [None]
